FAERS Safety Report 6036448-1 (Version None)
Quarter: 2009Q1

REPORT INFORMATION
  Report Type: 
  Country: None (occurrence: None)
  Receive Date: 20090112
  Receipt Date: 20090107
  Transmission Date: 20090719
  Serious: Yes (Other)
  Sender: FDA-Public Use
  Company Number: A0762660A

PATIENT
  Age: 63 Year
  Sex: Female

DRUGS (1)
  1. CALCIUM CARBONATE (FORMULATION UNKNOWN) ASSORTED FRUIT (CALCIUM CARBON [Suspect]
     Indication: DRUG USE FOR UNKNOWN INDICATION
     Dosage: ORAL
     Route: 048

REACTIONS (2)
  - HYPERSENSITIVITY [None]
  - LOSS OF CONSCIOUSNESS [None]
